FAERS Safety Report 9381890 (Version 1)
Quarter: 2013Q3

REPORT INFORMATION
  Report Type: Report from Study
  Country: BR (occurrence: BR)
  Receive Date: 20130703
  Receipt Date: 20130703
  Transmission Date: 20140515
  Serious: Yes (Hospitalization, Other)
  Sender: FDA-Public Use
  Company Number: PHHY2013BR067024

PATIENT
  Sex: Male

DRUGS (1)
  1. DIOVAN TRIPLE [Suspect]
     Indication: CARDIAC DISORDER
     Dosage: 1 DF(160/5/12.5 MG), Q12H
     Dates: end: 20130625

REACTIONS (1)
  - Chest pain [Recovering/Resolving]
